FAERS Safety Report 13586250 (Version 1)
Quarter: 2017Q2

REPORT INFORMATION
  Report Type: Spontaneous
  Country: CH (occurrence: CH)
  Receive Date: 20170526
  Receipt Date: 20170526
  Transmission Date: 20170830
  Serious: Yes (Hospitalization, Other)
  Sender: FDA-Public Use
  Company Number: CH-JNJFOC-20170522811

PATIENT
  Age: 64 Year
  Sex: Female

DRUGS (2)
  1. RIVAROXABAN [Suspect]
     Active Substance: RIVAROXABAN
     Indication: PRODUCT USED FOR UNKNOWN INDICATION
     Route: 048
  2. AMOXICILLIN. [Suspect]
     Active Substance: AMOXICILLIN
     Indication: KNEE ARTHROPLASTY
     Route: 065

REACTIONS (1)
  - Acute generalised exanthematous pustulosis [Recovering/Resolving]
